FAERS Safety Report 24798247 (Version 3)
Quarter: 2025Q1

REPORT INFORMATION
  Report Type: Report from Study
  Country: US (occurrence: US)
  Receive Date: 20250102
  Receipt Date: 20250116
  Transmission Date: 20250409
  Serious: Yes (Hospitalization, Other)
  Sender: TAKEDA
  Company Number: US-TAKEDA-2024TUS129729

PATIENT
  Sex: Male
  Weight: 79.5 kg

DRUGS (1)
  1. FRUQUINTINIB [Suspect]
     Active Substance: FRUQUINTINIB
     Indication: Rectosigmoid cancer

REACTIONS (6)
  - Metastases to liver [Unknown]
  - Rectosigmoid cancer [Unknown]
  - Pneumonia bacterial [Unknown]
  - Anxiety [Unknown]
  - Dysuria [Unknown]
  - Drug ineffective [Unknown]
